FAERS Safety Report 21423011 (Version 2)
Quarter: 2022Q4

REPORT INFORMATION
  Report Type: Report from Study
  Country: US (occurrence: None)
  Receive Date: 20221007
  Receipt Date: 20221014
  Transmission Date: 20230112
  Serious: Yes (Other)
  Sender: FDA-Public Use
  Company Number: US-Merck Healthcare KGaA-9355648

PATIENT
  Sex: Female

DRUGS (1)
  1. MAVENCLAD [Suspect]
     Active Substance: CLADRIBINE
     Indication: Tumefactive multiple sclerosis
     Route: 048
     Dates: start: 20220117

REACTIONS (3)
  - Rheumatoid arthritis [Unknown]
  - Skin discolouration [Unknown]
  - Off label use [Unknown]
